FAERS Safety Report 7927876-5 (Version None)
Quarter: 2011Q4

REPORT INFORMATION
  Report Type: 
  Country: None (occurrence: None)
  Receive Date: 20111118
  Receipt Date: 20111108
  Transmission Date: 20120403
  Serious: Yes (Other)
  Sender: FDA-Public Use
  Company Number: FR-JNJFOC-20111105832

PATIENT
  Age: 61 Year
  Sex: Male

DRUGS (7)
  1. STELARA [Suspect]
     Indication: PSORIASIS
     Dosage: FIRST INJECTION ON 01-FEB-2011  SECOND INJECTION ON 04-MAR-2011  THRID INJECTION ON 27-JUN-2011
     Route: 058
     Dates: start: 20110201
  2. LANTUS [Concomitant]
  3. TRAMADOL HCL [Concomitant]
     Route: 048
  4. NEXIUM [Concomitant]
  5. NOVORAPID [Concomitant]
  6. RIFAMPIN AND ISONIAZID [Concomitant]
     Indication: TUBERCULOSIS
     Dates: start: 20110101
  7. CLONAZEPAM [Concomitant]
     Route: 048

REACTIONS (1)
  - THROMBOCYTOPENIA [None]
